FAERS Safety Report 8812747 (Version 1)
Quarter: 2012Q4

REPORT INFORMATION
  Report Type: 
  Country: US (occurrence: US)
  Receive Date: 20120927
  Receipt Date: 20120927
  Transmission Date: 20130627
  Serious: No
  Sender: FDA-Public Use
  Company Number: US-B.I. PHARMACEUTICALS,INC./RIDGEFIELD-2012-BP-23367BP

PATIENT
  Age: 61 None
  Sex: Female
  Weight: 73 kg

DRUGS (8)
  1. SPIRIVA [Suspect]
     Indication: CHRONIC OBSTRUCTIVE PULMONARY DISEASE
     Dosage: 18 mcg
     Route: 055
     Dates: start: 2002
  2. SPIRIVA [Suspect]
     Route: 048
     Dates: start: 20120924, end: 20120924
  3. VERAPAMIL [Concomitant]
     Indication: HEART RATE INCREASED
     Dosage: 160 mg
     Route: 048
  4. FLOVENT [Concomitant]
     Indication: CHRONIC OBSTRUCTIVE PULMONARY DISEASE
     Route: 055
  5. ALBUTEROL [Concomitant]
     Indication: INHALATION THERAPY
     Route: 055
  6. MULTI- VITAMIN [Concomitant]
     Route: 048
  7. STOOL SOFTNER [Concomitant]
     Indication: CONSTIPATION
     Route: 048
  8. PEPCID AC [Concomitant]
     Indication: GASTROOESOPHAGEAL REFLUX DISEASE
     Route: 048
     Dates: start: 2006

REACTIONS (3)
  - Constipation [Not Recovered/Not Resolved]
  - Incorrect route of drug administration [Recovered/Resolved]
  - Hiccups [Not Recovered/Not Resolved]
